FAERS Safety Report 13626496 (Version 1)
Quarter: 2017Q2

REPORT INFORMATION
  Report Type: Spontaneous
  Country: US (occurrence: US)
  Receive Date: 20170531
  Receipt Date: 20170531
  Transmission Date: 20170830
  Serious: Yes (Life-Threatening)
  Sender: FDA-Public Use
  Company Number: US-ASTELLAS-1393381

PATIENT
  Age: 91 Year
  Sex: Female

DRUGS (6)
  1. CORDARONE [Concomitant]
     Active Substance: AMIODARONE HYDROCHLORIDE
  2. TARCEVA [Suspect]
     Active Substance: ERLOTINIB HYDROCHLORIDE
     Indication: MALIGNANT RESPIRATORY TRACT NEOPLASM
     Dosage: FREQUENCY: DAILY
     Route: 048
     Dates: start: 20140317, end: 20140429
  3. WARFARIN [Concomitant]
     Active Substance: WARFARIN
  4. MEGESTROL [Concomitant]
     Active Substance: MEGESTROL
  5. PROTONIX [Concomitant]
     Active Substance: PANTOPRAZOLE SODIUM
  6. SYNTHROID [Concomitant]
     Active Substance: LEVOTHYROXINE SODIUM

REACTIONS (4)
  - General physical health deterioration [Unknown]
  - Dehydration [Unknown]
  - Renal failure [Unknown]
  - Infection [Unknown]

NARRATIVE: CASE EVENT DATE: 20140429
